FAERS Safety Report 6071592-4 (Version None)
Quarter: 2009Q1

REPORT INFORMATION
  Report Type: 
  Country: None (occurrence: None)
  Receive Date: 20090205
  Receipt Date: 20090205
  Transmission Date: 20090719
  Serious: Yes (Hospitalization)
  Sender: FDA-Public Use
  Company Number: None

PATIENT
  Sex: Male
  Weight: 71.6683 kg

DRUGS (3)
  1. GEMCITABINE [Suspect]
     Indication: PANCREATIC CARCINOMA
     Dosage: AS ABOVE
     Route: 042
  2. TARCEVA [Suspect]
     Indication: PANCREATIC CARCINOMA
     Dosage: AS ABOVE
  3. RADIATION 40CGY BID DAYS 1,2,8,9 [Suspect]
     Indication: PANCREATIC CARCINOMA
     Dosage: AS ABOVE

REACTIONS (8)
  - ASTHENIA [None]
  - BLOOD UREA INCREASED [None]
  - DEHYDRATION [None]
  - GASTROINTESTINAL HAEMORRHAGE [None]
  - HAEMOGLOBIN DECREASED [None]
  - ILL-DEFINED DISORDER [None]
  - PLATELET COUNT INCREASED [None]
  - WHITE BLOOD CELL COUNT INCREASED [None]
